FAERS Safety Report 11462786 (Version 1)
Quarter: 2015Q3

REPORT INFORMATION
  Report Type: Spontaneous
  Country: US (occurrence: US)
  Receive Date: 20150831
  Receipt Date: 20150831
  Transmission Date: 20151125
  Serious: No
  Sender: FDA-Public Use
  Company Number: US-ELI_LILLY_AND_COMPANY-US201101005896

PATIENT
  Age: 38 Year
  Sex: Female

DRUGS (13)
  1. TRAMADOL. [Concomitant]
     Active Substance: TRAMADOL
     Dosage: 50 MG, DAILY (3/D) (AS NEEDED)
  2. GABAPENTIN. [Concomitant]
     Active Substance: GABAPENTIN
     Dosage: 300 MG, 2/D (AS NEEDED)
  3. NISOLDIPINE. [Concomitant]
     Active Substance: NISOLDIPINE
     Dosage: 60 MG, DAILY (1/D)
  4. RANITIDINE [Concomitant]
     Active Substance: RANITIDINE\RANITIDINE HYDROCHLORIDE
     Dosage: 150 MG, 2/D
  5. VICODIN [Concomitant]
     Active Substance: ACETAMINOPHEN\HYDROCODONE BITARTRATE
     Dosage: 750 MG, 2/D (AS NEEDED)
  6. CYMBALTA [Suspect]
     Active Substance: DULOXETINE HYDROCHLORIDE
     Dosage: 60 MG, 2/D
     Dates: end: 20110114
  7. CYCLOBENZAPRINE [Concomitant]
     Active Substance: CYCLOBENZAPRINE
     Dosage: 10 MG, DAILY (1/D)
  8. SENEXON [Concomitant]
     Active Substance: SENNOSIDES A AND B
     Dosage: UNK, DAILY (1/D)
  9. MECLIZINE [Concomitant]
     Active Substance: MECLIZINE\MECLIZINE HYDROCHLORIDE
     Dosage: 12.5 MG, 2/D AS NEEDED
  10. DICYCLOMINE [Concomitant]
     Active Substance: DICYCLOMINE HYDROCHLORIDE
     Dosage: 10 MG, 4/D
  11. VICODIN [Concomitant]
     Active Substance: ACETAMINOPHEN\HYDROCODONE BITARTRATE
     Dosage: 550 MG, AS NEEDED
  12. CYMBALTA [Suspect]
     Active Substance: DULOXETINE HYDROCHLORIDE
     Indication: DEPRESSION
     Dosage: 60 MG, 2/D
  13. TOPAMAX [Concomitant]
     Active Substance: TOPIRAMATE
     Dosage: 200 MG, EACH EVENING

REACTIONS (21)
  - Visual impairment [Unknown]
  - Agitation [Unknown]
  - Nausea [Unknown]
  - Mood swings [Unknown]
  - Vomiting [Unknown]
  - Headache [Unknown]
  - Decreased activity [Unknown]
  - Asthenia [Unknown]
  - Fatigue [Unknown]
  - Hyperhidrosis [Unknown]
  - Drug withdrawal syndrome [Unknown]
  - Irritability [Unknown]
  - Screaming [Unknown]
  - Feeling jittery [Unknown]
  - Diarrhoea [Unknown]
  - Alopecia [Unknown]
  - Malaise [Unknown]
  - Insomnia [Unknown]
  - Vision blurred [Unknown]
  - Dizziness [Unknown]
  - Anxiety [Unknown]

NARRATIVE: CASE EVENT DATE: 201101
